FAERS Safety Report 4760336-1 (Version None)
Quarter: 2005Q3

REPORT INFORMATION
  Report Type: 
  Country: None (occurrence: None)
  Receive Date: 20050831
  Receipt Date: 20050811
  Transmission Date: 20060218
  Serious: No
  Sender: FDA-Public Use
  Company Number: JP_050606822

PATIENT
  Age: 55 Year
  Sex: Male
  Weight: 63 kg

DRUGS (7)
  1. GEMZAR [Suspect]
     Indication: PANCREATIC CARCINOMA STAGE IV
     Dosage: 1700 MG OTHER
     Route: 050
     Dates: start: 20050527
  2. LAC B (LACTOBACILLUS BIFIDUS, LYOPHILIZED) [Concomitant]
  3. SUCRALFATE [Concomitant]
  4. FAMOTIDINE [Concomitant]
  5. DEPAS (ETIZOLAM) [Concomitant]
  6. LOPERAMIDE HCL [Concomitant]
  7. RADIOTHERAPY [Concomitant]

REACTIONS (8)
  - DECREASED APPETITE [None]
  - DYSGEUSIA [None]
  - ERYTHEMA [None]
  - GLOSSODYNIA [None]
  - PYREXIA [None]
  - TONGUE DISORDER [None]
  - URTICARIA [None]
  - VOMITING [None]
